FAERS Safety Report 7098729-2 (Version None)
Quarter: 2010Q4

REPORT INFORMATION
  Report Type: 
  Country: None (occurrence: None)
  Receive Date: 20101110
  Receipt Date: 20101110
  Transmission Date: 20110411
  Serious: No
  Sender: FDA-Public Use
  Company Number: None

PATIENT
  Age: 28 Year
  Sex: Female
  Weight: 76.6579 kg

DRUGS (2)
  1. TOPIRAMATE [Suspect]
     Indication: CLUSTER HEADACHE
     Dates: start: 20100425, end: 20100720
  2. TOPIRAMATE [Suspect]
     Indication: MIGRAINE
     Dates: start: 20100425, end: 20100720

REACTIONS (12)
  - ALOPECIA [None]
  - AMNESIA [None]
  - BONE PAIN [None]
  - CONTUSION [None]
  - COUGH [None]
  - DISTURBANCE IN ATTENTION [None]
  - DRUG INEFFECTIVE [None]
  - IRRITABILITY [None]
  - MICTURITION DISORDER [None]
  - MYALGIA [None]
  - PARAESTHESIA [None]
  - VISUAL IMPAIRMENT [None]
